FAERS Safety Report 7108342-6 (Version None)
Quarter: 2010Q4

REPORT INFORMATION
  Report Type: 
  Country: None (occurrence: None)
  Receive Date: 20101115
  Receipt Date: 20101115
  Transmission Date: 20110411
  Serious: Yes (Life-Threatening, Disabling)
  Sender: FDA-Public Use
  Company Number: None

PATIENT
  Age: 74 Year
  Sex: Male
  Weight: 68.9467 kg

DRUGS (2)
  1. AVANDIA [Suspect]
     Indication: DIABETES MELLITUS
     Dosage: 8 MG 1/DAY MOUTH
     Route: 048
     Dates: start: 20030101, end: 20070701
  2. AVANDIA [Suspect]

REACTIONS (7)
  - ABASIA [None]
  - ELECTROCARDIOGRAM ABNORMAL [None]
  - FATIGUE [None]
  - HEART RATE IRREGULAR [None]
  - RETINAL DISORDER [None]
  - SWELLING [None]
  - VISUAL ACUITY REDUCED [None]
